FAERS Safety Report 4832043-8 (Version None)
Quarter: 2005Q4

REPORT INFORMATION
  Report Type: 
  Country: None (occurrence: None)
  Receive Date: 20051116
  Receipt Date: 20051102
  Transmission Date: 20060501
  Serious: Yes (Hospitalization)
  Sender: FDA-Public Use
  Company Number: 2005-US-00099

PATIENT
  Age: 34 Year
  Sex: Female
  Weight: 112.4921 kg

DRUGS (3)
  1. CLOZAPINE [Suspect]
     Indication: SCHIZOAFFECTIVE DISORDER
     Dosage: 250 MG, QD, ORAL
     Route: 048
     Dates: start: 20050805, end: 20050913
  2. LEVOTHYROXINE SODIUM [Concomitant]
  3. VALPROATE SODIUM [Concomitant]

REACTIONS (4)
  - DRUG LEVEL INCREASED [None]
  - LEUKOCYTOSIS [None]
  - NEPHRITIS INTERSTITIAL [None]
  - PYREXIA [None]
